FAERS Safety Report 9925542 (Version 2)
Quarter: 2014Q1

REPORT INFORMATION
  Report Type: Spontaneous
  Country: US (occurrence: US)
  Receive Date: 20140226
  Receipt Date: 20140319
  Transmission Date: 20141002
  Serious: Yes (Hospitalization)
  Sender: FDA-Public Use
  Company Number: US-B.I. PHARMACEUTICALS,INC./RIDGEFIELD-2014-BI-07443BP

PATIENT
  Sex: Male
  Weight: 68 kg

DRUGS (17)
  1. COMBIVENT [Suspect]
     Indication: ASTHMA
     Dosage: 18 MCG / 103 MCG;
     Route: 055
  2. LISINOPRIL [Concomitant]
     Indication: HYPERTENSION
     Dosage: 10 MG
     Route: 048
  3. VITAMIN D3 [Concomitant]
     Indication: ROUTINE HEALTH MAINTENANCE
     Route: 048
  4. BABY ASPIRIN [Concomitant]
     Dosage: 81 MG
     Route: 048
  5. GABAPENTIN [Concomitant]
     Indication: NEUROPATHY PERIPHERAL
     Dosage: 3000 MG
     Route: 048
  6. GLIPIZIDE [Concomitant]
     Indication: DIABETES MELLITUS
     Dosage: 10 MG
     Route: 048
  7. NYSTATIN [Concomitant]
     Indication: ORAL FUNGAL INFECTION
     Route: 048
  8. PREDNISONE [Concomitant]
     Indication: ARTHRALGIA
     Dosage: 5 MG
     Route: 048
  9. PROTONIX [Concomitant]
     Indication: GASTROOESOPHAGEAL REFLUX DISEASE
     Dosage: 40 MG
     Route: 048
  10. RAPAFLO [Concomitant]
     Indication: PROSTATE CANCER
     Dosage: 8 MG
     Route: 048
  11. SYMBICORT [Concomitant]
     Indication: ASTHMA
     Dosage: 9 MG
     Route: 055
  12. VITAMIN C [Concomitant]
     Indication: NASOPHARYNGITIS
     Dosage: 1000 MG
     Route: 048
  13. VITAMIN C [Concomitant]
     Indication: RESPIRATORY THERAPY
  14. FUROSEMIDE [Concomitant]
     Indication: LOCAL SWELLING
     Dosage: 40 MG
     Route: 048
  15. FISH OIL [Concomitant]
     Indication: ROUTINE HEALTH MAINTENANCE
     Dosage: 1000 MG
     Route: 048
  16. COQ 10 [Concomitant]
     Indication: CARDIOVASCULAR EVENT PROPHYLAXIS
     Dosage: 400 MG
     Route: 048
  17. MULTI VITAMIN [Concomitant]
     Indication: VITAMIN SUPPLEMENTATION
     Dosage: 1 ANZ
     Route: 048

REACTIONS (3)
  - Coronary artery occlusion [Recovered/Resolved]
  - Memory impairment [Not Recovered/Not Resolved]
  - Off label use [Unknown]
